FAERS Safety Report 6879368-2 (Version None)
Quarter: 2010Q3

REPORT INFORMATION
  Report Type: 
  Country: None (occurrence: None)
  Receive Date: 20100727
  Receipt Date: 20100716
  Transmission Date: 20110219
  Serious: Yes (Other)
  Sender: FDA-Public Use
  Company Number: AU-ABBOTT-10P-008-0657674-00

PATIENT
  Age: 59 Year
  Sex: Male
  Weight: 89 kg

DRUGS (4)
  1. LIPIDIL [Suspect]
     Indication: XANTHOMATOSIS
     Dosage: DAILY
     Route: 048
     Dates: start: 20091012, end: 20100419
  2. COVERSYL PLUS [Concomitant]
     Indication: ESSENTIAL HYPERTENSION
     Route: 048
     Dates: start: 20070521
  3. CRESTOR [Concomitant]
     Indication: METABOLIC DISORDER
     Route: 048
     Dates: start: 20080530
  4. NORVASC [Concomitant]
     Indication: ESSENTIAL HYPERTENSION
     Route: 048
     Dates: start: 20080508

REACTIONS (5)
  - LETHARGY [None]
  - LOSS OF LIBIDO [None]
  - PAROTID GLAND ENLARGEMENT [None]
  - PAROTITIS [None]
  - RASH ERYTHEMATOUS [None]
